FAERS Safety Report 9035250 (Version 1)
Quarter: 2013Q1

REPORT INFORMATION
  Report Type: Report from Study
  Country: US (occurrence: US)
  Receive Date: 20130129
  Receipt Date: 20130129
  Transmission Date: 20140127
  Serious: No
  Sender: FDA-Public Use
  Company Number: US-ABBOTT-12P-163-0899090-00

PATIENT
  Age: 34 Year
  Sex: Female

DRUGS (7)
  1. HUMIRA 40 MG/0.8 ML PEN [Suspect]
     Indication: CROHN^S DISEASE
     Dates: start: 20111206
  2. ZYRTEC [Concomitant]
     Indication: HYPERSENSITIVITY
     Dosage: ONCE DAILY, AT HOUR OF SLEEP
  3. PROTONIX [Concomitant]
     Indication: GASTROOESOPHAGEAL REFLUX DISEASE
     Dosage: EVERY DAY IN THE MORNING
  4. PENTASA [Concomitant]
     Indication: CROHN^S DISEASE
     Dosage: 4 CAPSULE IN THE MORNING AND THE EVENING
  5. MULTIVITAMINS [Concomitant]
     Indication: PRODUCT USED FOR UNKNOWN INDICATION
     Dosage: EVERY DAY
  6. ADVIL [Concomitant]
     Indication: HEADACHE
  7. UNKNOWN MIGRAINE MEDICATION [Concomitant]
     Indication: MIGRAINE

REACTIONS (2)
  - Injection site pain [Not Recovered/Not Resolved]
  - Migraine [Unknown]
